FAERS Safety Report 12479528 (Version 1)
Quarter: 2016Q2

REPORT INFORMATION
  Report Type: Other
  Country: GB (occurrence: GB)
  Receive Date: 20160620
  Receipt Date: 20160620
  Transmission Date: 20160815
  Serious: Yes (Other)
  Sender: FDA-Public Use
  Company Number: GB-MACLEODS PHARMACEUTICALS US LTD-MAC2016002822

PATIENT

DRUGS (12)
  1. BISOPROLOL [Interacting]
     Active Substance: BISOPROLOL
     Indication: PROPHYLAXIS
  2. TAMSULOSIN [Suspect]
     Active Substance: TAMSULOSIN
     Indication: VASCULAR GRAFT
     Dosage: 400 MG, QD
     Route: 065
     Dates: start: 2014
  3. L-THYROXINE SODIUM [Suspect]
     Active Substance: LEVOTHYROXINE SODIUM
     Indication: VASCULAR GRAFT
     Dosage: 150 ?G, QD
     Route: 065
     Dates: start: 2014
  4. CLOPIDOGREL [Suspect]
     Active Substance: CLOPIDOGREL BISULFATE
     Indication: VASCULAR GRAFT
     Dosage: 75 MG, QD
     Route: 065
     Dates: start: 2014
  5. CLOPIDOGREL [Suspect]
     Active Substance: CLOPIDOGREL BISULFATE
     Indication: PROPHYLAXIS
  6. ASPIRIN. [Suspect]
     Active Substance: ASPIRIN
     Indication: VASCULAR GRAFT
     Dosage: 75 MG, QD
     Route: 065
     Dates: start: 2014
  7. L-THYROXINE SODIUM [Suspect]
     Active Substance: LEVOTHYROXINE SODIUM
     Indication: PROPHYLAXIS
  8. BISOPROLOL [Interacting]
     Active Substance: BISOPROLOL
     Indication: VASCULAR GRAFT
     Dosage: 1.25 MG,
     Route: 065
     Dates: start: 2014
  9. RAMIPRIL. [Suspect]
     Active Substance: RAMIPRIL
     Indication: PROPHYLAXIS
     Dosage: UNK
     Route: 065
  10. ASPIRIN. [Suspect]
     Active Substance: ASPIRIN
     Indication: PROPHYLAXIS
  11. TAMSULOSIN [Suspect]
     Active Substance: TAMSULOSIN
     Indication: PROPHYLAXIS
  12. RAMIPRIL. [Suspect]
     Active Substance: RAMIPRIL
     Indication: VASCULAR GRAFT
     Dosage: UNK
     Route: 065
     Dates: start: 2014

REACTIONS (8)
  - Chest pain [Not Recovered/Not Resolved]
  - Chest discomfort [Not Recovered/Not Resolved]
  - Pain in extremity [Not Recovered/Not Resolved]
  - Dyspnoea at rest [Not Recovered/Not Resolved]
  - Musculoskeletal pain [Not Recovered/Not Resolved]
  - Drug interaction [Unknown]
  - Pain [Not Recovered/Not Resolved]
  - Neck pain [Not Recovered/Not Resolved]

NARRATIVE: CASE EVENT DATE: 2014
